FAERS Safety Report 21805809 (Version 2)
Quarter: 2023Q1

REPORT INFORMATION
  Report Type: Report from Study
  Country: US (occurrence: US)
  Receive Date: 20230102
  Receipt Date: 20230203
  Transmission Date: 20230417
  Serious: No
  Sender: FDA-Public Use
  Company Number: US-ABBVIE-4223522

PATIENT
  Sex: Female

DRUGS (1)
  1. HUMIRA [Suspect]
     Active Substance: ADALIMUMAB
     Indication: Colitis ulcerative
     Dosage: CITRATE FREE, FORM STRENGTH 40 MG
     Route: 058

REACTIONS (5)
  - Illness [Not Recovered/Not Resolved]
  - Drainage [Unknown]
  - Influenza [Unknown]
  - Immunodeficiency [Unknown]
  - Upper respiratory tract infection [Unknown]
